FAERS Safety Report 20617162 (Version 1)
Quarter: 2022Q1

REPORT INFORMATION
  Report Type: Spontaneous
  Country: ES (occurrence: ES)
  Receive Date: 20220321
  Receipt Date: 20220321
  Transmission Date: 20220423
  Serious: Yes (Other)
  Sender: FDA-Public Use
  Company Number: None

PATIENT
  Age: 26 Year
  Sex: Male
  Weight: 70 kg

DRUGS (5)
  1. STRATTERA [Suspect]
     Active Substance: ATOMOXETINE HYDROCHLORIDE
     Indication: Depression
     Dosage: HAN IDO AUMENTANDO LA DOSIS C/8D?AS
     Route: 048
     Dates: start: 20220128, end: 20220225
  2. STRATTERA [Suspect]
     Active Substance: ATOMOXETINE HYDROCHLORIDE
     Dosage: UN COMPRIMIDO POR LA MA?ANA
     Route: 048
     Dates: start: 20220225
  3. VALPROATE SODIUM [Suspect]
     Active Substance: VALPROATE SODIUM
     Indication: Catatonia
     Dosage: 3 COMPRIMIDOS POR LA NOCHE
     Route: 048
     Dates: start: 20220226
  4. FLUOXETINE HYDROCHLORIDE [Suspect]
     Active Substance: FLUOXETINE HYDROCHLORIDE
     Indication: Insomnia
     Dosage: MEDIO COMPRIMIDO DESPUES DE LA CENA
     Route: 048
     Dates: start: 20220301
  5. ALBUTEROL SULFATE [Concomitant]
     Active Substance: ALBUTEROL SULFATE
     Indication: Asthma
     Dosage: A DEMANDA
     Route: 055
     Dates: start: 20140101

REACTIONS (2)
  - Balance disorder [Not Recovered/Not Resolved]
  - Tinnitus [Not Recovered/Not Resolved]

NARRATIVE: CASE EVENT DATE: 20220303
